FAERS Safety Report 7250824-0 (Version None)
Quarter: 2011Q1

REPORT INFORMATION
  Report Type: 
  Country: None (occurrence: None)
  Receive Date: 20110119
  Receipt Date: 20110107
  Transmission Date: 20110831
  Serious: Yes (Hospitalization)
  Sender: FDA-Public Use
  Company Number: 025029

PATIENT
  Age: 90 Year
  Sex: Male

DRUGS (8)
  1. PRAVASTATIN SODIUM [Concomitant]
  2. ADANCOR [Suspect]
  3. DIGOXIN [Concomitant]
  4. KEPPRA [Suspect]
     Dosage: 250 MG BID ORAL
     Route: 048
     Dates: start: 20101205, end: 20101208
  5. LAMICTAL [Suspect]
     Dates: start: 20101209
  6. COUMADIN [Concomitant]
  7. BISOPROLOL FUMARATE [Concomitant]
  8. RAMIPRIL [Concomitant]

REACTIONS (5)
  - THROMBOCYTOPENIA [None]
  - VASCULITIS [None]
  - OEDEMA [None]
  - ENDOCARDITIS [None]
  - DISTURBANCE IN ATTENTION [None]
